FAERS Safety Report 5478218-9 (Version None)
Quarter: 2007Q4

REPORT INFORMATION
  Report Type: 
  Country: None (occurrence: None)
  Receive Date: 20071005
  Receipt Date: 20070503
  Transmission Date: 20080405
  Serious: Yes (Other)
  Sender: FDA-Public Use
  Company Number: US-BRISTOL-MYERS SQUIBB COMPANY-13769070

PATIENT
  Sex: Male

DRUGS (5)
  1. AVAPRO [Suspect]
     Indication: HYPERTENSION
     Route: 048
     Dates: start: 20061101
  2. ALLOPURINOL [Concomitant]
  3. ATENOLOL [Concomitant]
  4. LEVOTHYROXINE SODIUM [Concomitant]
  5. FUROSEMIDE [Concomitant]

REACTIONS (1)
  - ATRIAL FIBRILLATION [None]
